FAERS Safety Report 21701191 (Version 1)
Quarter: 2022Q4

REPORT INFORMATION
  Report Type: Spontaneous
  Country: US (occurrence: None)
  Receive Date: 20221208
  Receipt Date: 20221208
  Transmission Date: 20230113
  Serious: Yes (Other)
  Sender: FDA-Public Use
  Company Number: None

PATIENT
  Age: 67 Year
  Sex: Female

DRUGS (5)
  1. PROMETHAZINE HYDROCHLORIDE [Suspect]
     Active Substance: PROMETHAZINE HYDROCHLORIDE
     Indication: Abdominal discomfort
     Dosage: OTHER QUANTITY : 1 TABLET(S);?FREQUENCY : AS NEEDED;?
     Route: 048
     Dates: start: 20220929, end: 20220929
  2. ATENOLOL [Concomitant]
     Active Substance: ATENOLOL
  3. FUROSEMIDE [Concomitant]
     Active Substance: FUROSEMIDE
  4. LOSARTAN [Concomitant]
     Active Substance: LOSARTAN
  5. isosorbide monitrate [Concomitant]

REACTIONS (7)
  - Fall [None]
  - Altered state of consciousness [None]
  - Somnambulism [None]
  - Hypersomnia [None]
  - Product dispensing error [None]
  - Product substitution issue [None]
  - Abdominal pain upper [None]

NARRATIVE: CASE EVENT DATE: 20220929
